FAERS Safety Report 6781169-0 (Version None)
Quarter: 2010Q2

REPORT INFORMATION
  Report Type: 
  Country: None (occurrence: None)
  Receive Date: 20100621
  Receipt Date: 20100609
  Transmission Date: 20101027
  Serious: Yes (Other)
  Sender: FDA-Public Use
  Company Number: DE-PFIZER INC-2010071870

PATIENT
  Age: 26 Year
  Sex: Female

DRUGS (1)
  1. CLINDAMYCIN PHOSPHATE [Suspect]
     Dosage: UNK
     Route: 048
     Dates: start: 20100515

REACTIONS (4)
  - GAIT DISTURBANCE [None]
  - PRURITUS [None]
  - RASH [None]
  - SWELLING [None]
